FAERS Safety Report 14073858 (Version 2)
Quarter: 2017Q4

REPORT INFORMATION
  Report Type: Spontaneous
  Country: FR (occurrence: FR)
  Receive Date: 20171011
  Receipt Date: 20171109
  Transmission Date: 20180321
  Serious: Yes (Hospitalization, Other)
  Sender: FDA-Public Use
  Company Number: FR-PFIZER INC-2017433295

PATIENT
  Age: 42 Year
  Sex: Male

DRUGS (1)
  1. LYRICA [Suspect]
     Active Substance: PREGABALIN
     Dosage: 8400 MG, SINGLE

REACTIONS (7)
  - Overdose [Unknown]
  - Oxygen saturation decreased [Recovered/Resolved]
  - Poisoning deliberate [Not Recovered/Not Resolved]
  - Somnolence [Recovered/Resolved]
  - Suicide attempt [Unknown]
  - Pneumonia aspiration [Recovering/Resolving]
  - Rhabdomyolysis [Recovered/Resolved]

NARRATIVE: CASE EVENT DATE: 20170920
